FAERS Safety Report 14763039 (Version 1)
Quarter: 2018Q2

REPORT INFORMATION
  Report Type: Spontaneous
  Country: US (occurrence: US)
  Receive Date: 20180416
  Receipt Date: 20180416
  Transmission Date: 20180711
  Serious: No
  Sender: FDA-Public Use
  Company Number: US-TAKEDA-2018TUS009819

PATIENT
  Sex: Female

DRUGS (3)
  1. TACROLIMUS. [Concomitant]
     Active Substance: TACROLIMUS
     Indication: EOSINOPHILIC OESOPHAGITIS
     Dosage: UNK
  2. ENTYVIO [Suspect]
     Active Substance: VEDOLIZUMAB
     Indication: EOSINOPHILIC OESOPHAGITIS
     Dosage: UNK
     Route: 065
  3. AZATHIOPRINE. [Concomitant]
     Active Substance: AZATHIOPRINE
     Indication: EOSINOPHILIC OESOPHAGITIS
     Dosage: UNK

REACTIONS (2)
  - Off label use [Unknown]
  - No adverse event [Unknown]
